FAERS Safety Report 8300967-5 (Version None)
Quarter: 2012Q2

REPORT INFORMATION
  Report Type: 
  Country: None (occurrence: None)
  Receive Date: 20120420
  Receipt Date: 20120416
  Transmission Date: 20120825
  Serious: Yes (Death, Life-Threatening, Hospitalization, Disabling)
  Sender: FDA-Public Use
  Company Number: US-BAYER-2012-037382

PATIENT
  Sex: Female

DRUGS (2)
  1. AVELOX [Suspect]
     Dosage: DAILY DOSE 400 MG
     Route: 048
     Dates: start: 20120401
  2. PROPRANOLOL [Concomitant]

REACTIONS (2)
  - RASH [None]
  - ANAPHYLACTIC SHOCK [None]
